FAERS Safety Report 6803938-0 (Version None)
Quarter: 2010Q2

REPORT INFORMATION
  Report Type: 
  Country: None (occurrence: None)
  Receive Date: 20100628
  Receipt Date: 20060517
  Transmission Date: 20101027
  Serious: No
  Sender: FDA-Public Use
  Company Number: US-PFIZER INC-2006065669

PATIENT
  Age: 62 Year
  Sex: Female

DRUGS (3)
  1. SUTENT [Suspect]
     Indication: GASTROINTESTINAL STROMAL TUMOUR
     Dosage: CYCLIC QD, 4WEEKS ON 2WEEKS OFF
     Route: 065
     Dates: start: 20060101
  2. PROCRIT [Concomitant]
     Indication: ANAEMIA
     Dates: start: 20060101
  3. EPOGEN [Concomitant]
     Indication: ANAEMIA
     Dates: start: 20060101

REACTIONS (5)
  - ANAEMIA [None]
  - NAUSEA [None]
  - PAIN [None]
  - RETCHING [None]
  - VOMITING [None]
